FAERS Safety Report 8843557 (Version 2)
Quarter: 2014Q2

REPORT INFORMATION
  Report Type: Spontaneous
  Country: US (occurrence: US)
  Receive Date: 20121016
  Receipt Date: 20140507
  Transmission Date: 20141212
  Serious: Yes (Other)
  Sender: FDA-Public Use
  Company Number: PHHY2012US089846

PATIENT
  Age: 81 Year
  Sex: Female

DRUGS (2)
  1. ASCRIPTIN BUFFERED [Suspect]
     Dosage: 1 DF, A DAY
     Route: 048
     Dates: start: 2003
  2. GABAPENTIN [Concomitant]

REACTIONS (8)
  - Meniscus injury [Recovered/Resolved]
  - Road traffic accident [Recovered/Resolved]
  - Intervertebral disc protrusion [Not Recovered/Not Resolved]
  - Nerve injury [Not Recovered/Not Resolved]
  - Arthropathy [Recovering/Resolving]
  - Back injury [Not Recovered/Not Resolved]
  - Haemorrhage [Recovered/Resolved]
  - Incorrect drug administration duration [Unknown]
